FAERS Safety Report 10367893 (Version 1)
Quarter: 2014Q3

REPORT INFORMATION
  Report Type: Spontaneous
  Country: US (occurrence: US)
  Receive Date: 20140807
  Receipt Date: 20140807
  Transmission Date: 20150326
  Serious: No
  Sender: FDA-Public Use
  Company Number: US-PFIZER INC-2014216187

PATIENT

DRUGS (1)
  1. IRINOTECAN HCL [Suspect]
     Active Substance: IRINOTECAN HYDROCHLORIDE
     Indication: ADENOCARCINOMA PANCREAS
     Dosage: UNK, FOR NINE CYCLES
     Dates: start: 201301

REACTIONS (1)
  - Carbohydrate antigen 19-9 increased [Unknown]

NARRATIVE: CASE EVENT DATE: 201310
